FAERS Safety Report 5742573-2 (Version None)
Quarter: 2008Q2

REPORT INFORMATION
  Report Type: 
  Country: None (occurrence: None)
  Receive Date: 20080515
  Receipt Date: 20080515
  Transmission Date: 20081010
  Serious: Yes (Other)
  Sender: FDA-Public Use
  Company Number: None

PATIENT
  Sex: Female
  Weight: 79.3795 kg

DRUGS (2)
  1. PREVPAC [Suspect]
     Indication: HELICOBACTER INFECTION
     Dosage: CONSUMED 4 DOSES      2 TIMES PER DAY
     Dates: start: 20080407
  2. PREVPAC [Suspect]
     Indication: HELICOBACTER INFECTION
     Dosage: CONSUMED 4 DOSES      2 TIMES PER DAY
     Dates: start: 20080408

REACTIONS (7)
  - DRUG INEFFECTIVE [None]
  - HYPERSENSITIVITY [None]
  - OEDEMA MOUTH [None]
  - RASH [None]
  - STOMATITIS [None]
  - SWOLLEN TONGUE [None]
  - TONGUE ULCERATION [None]
